FAERS Safety Report 25276151 (Version 1)
Quarter: 2025Q2

REPORT INFORMATION
  Report Type: Spontaneous
  Country: JP (occurrence: JP)
  Receive Date: 20250507
  Receipt Date: 20250507
  Transmission Date: 20250716
  Serious: Yes (Other)
  Sender: BOEHRINGER INGELHEIM
  Company Number: JP-NBI-2025-BI-024946

PATIENT
  Age: 84 Year
  Sex: Female

DRUGS (1)
  1. JARDIANCE [Suspect]
     Active Substance: EMPAGLIFLOZIN
     Indication: Diabetes mellitus

REACTIONS (13)
  - Pulmonary congestion [Unknown]
  - Brain natriuretic peptide abnormal [Unknown]
  - Troponin I abnormal [Unknown]
  - Blood creatine phosphokinase MB abnormal [Unknown]
  - Blood creatine phosphokinase abnormal [Unknown]
  - Glomerular filtration rate abnormal [Unknown]
  - Blood creatinine abnormal [Unknown]
  - Blood urea abnormal [Unknown]
  - Blood lactate dehydrogenase abnormal [Unknown]
  - Bundle branch block right [Unknown]
  - Oedema peripheral [Unknown]
  - Cardiac murmur [Unknown]
  - Respiratory rate increased [Unknown]
